FAERS Safety Report 7865661-3 (Version None)
Quarter: 2011Q4

REPORT INFORMATION
  Report Type: 
  Country: None (occurrence: None)
  Receive Date: 20111028
  Receipt Date: 20110202
  Transmission Date: 20120403
  Serious: No
  Sender: FDA-Public Use
  Company Number: US-GLAXOSMITHKLINE-A0911457A

PATIENT
  Age: 68 Year
  Sex: Male

DRUGS (7)
  1. ALLOPURINOL [Concomitant]
  2. NIACIN [Concomitant]
  3. ADVAIR DISKUS 100/50 [Suspect]
     Indication: CHRONIC OBSTRUCTIVE PULMONARY DISEASE
     Dosage: 1PUFF TWICE PER DAY
     Route: 055
     Dates: start: 20070101
  4. LIPITOR [Concomitant]
  5. SINGULAIR [Concomitant]
  6. SPIRIVA [Concomitant]
  7. HYZAAR [Concomitant]

REACTIONS (2)
  - TONGUE DISCOLOURATION [None]
  - GLOSSODYNIA [None]
